FAERS Safety Report 4319223-5 (Version None)
Quarter: 2004Q1

REPORT INFORMATION
  Report Type: 
  Country: None (occurrence: None)
  Receive Date: 20040316
  Receipt Date: 20040301
  Transmission Date: 20041129
  Serious: Yes (Other)
  Sender: FDA-Public Use
  Company Number: 193571

PATIENT
  Sex: Female

DRUGS (1)
  1. AVONEX [Suspect]
     Indication: MULTIPLE SCLEROSIS RELAPSE
     Dosage: 30 MCG QW IM
     Route: 030
     Dates: start: 20030101

REACTIONS (7)
  - AMENORRHOEA [None]
  - BRAIN OEDEMA [None]
  - HEADACHE [None]
  - METRORRHAGIA [None]
  - VARICOSE VEIN [None]
  - VOMITING [None]
  - WEIGHT INCREASED [None]
